FAERS Safety Report 12133368 (Version 1)
Quarter: 2016Q1

REPORT INFORMATION
  Report Type: Spontaneous
  Country: US (occurrence: None)
  Receive Date: 20160229
  Receipt Date: 20160229
  Transmission Date: 20160526
  Serious: No
  Sender: FDA-Public Use
  Company Number: None

PATIENT
  Age: 23 Year
  Sex: Male
  Weight: 58.97 kg

DRUGS (3)
  1. DIFFERIN [Concomitant]
     Active Substance: ADAPALENE
  2. VITAMIN D [Concomitant]
     Active Substance: CHOLECALCIFEROL
  3. MINOCYCLINE [Suspect]
     Active Substance: MINOCYCLINE\MINOCYCLINE HYDROCHLORIDE
     Indication: ACNE
     Dosage: 1 PILL
     Route: 048
     Dates: start: 20150621, end: 20150630

REACTIONS (2)
  - Depression [None]
  - Vitamin D decreased [None]

NARRATIVE: CASE EVENT DATE: 20150630
